FAERS Safety Report 21486167 (Version 2)
Quarter: 2022Q4

REPORT INFORMATION
  Report Type: Spontaneous
  Country: US (occurrence: US)
  Receive Date: 20221020
  Receipt Date: 20221108
  Transmission Date: 20230112
  Serious: Yes (Hospitalization)
  Sender: FDA-Public Use
  Company Number: US-TEVA-2022-US-2816692

PATIENT
  Age: 12 Year
  Sex: Female
  Weight: 54.1 kg

DRUGS (6)
  1. PROPOFOL [Suspect]
     Active Substance: PROPOFOL
     Indication: Anaesthesia
     Dosage: INDUCTION ANAESTHESIA: (1.85 MG/KG)
     Route: 065
  2. PROPOFOL [Suspect]
     Active Substance: PROPOFOL
     Dosage: TWO ADDITIONAL 50 MG BOLUSES
     Route: 065
  3. PROPOFOL [Suspect]
     Active Substance: PROPOFOL
     Dosage: ANAESTHESIA MAINTAINED ON: 150-200 MICROGRAM/KG/MIN (TOTAL 2.245 G)
     Route: 050
  4. METHADONE [Suspect]
     Active Substance: METHADONE HYDROCHLORIDE
     Indication: Anaesthesia
     Dosage: INDUCTION ANAESTHESIA: (0.2 MG/KG)
     Route: 042
  5. MIDAZOLAM [Suspect]
     Active Substance: MIDAZOLAM
     Indication: Anaesthesia
     Dosage: PRIOR TO INDUCTION: (0.04 MG/KG)
     Route: 042
  6. KETAMINE [Suspect]
     Active Substance: KETAMINE
     Indication: Anaesthesia
     Dosage: 15-75 MICROGRAM/KG/MIN (TOTAL 483 MG)
     Route: 065

REACTIONS (4)
  - Respiratory depression [Recovering/Resolving]
  - Depressed level of consciousness [Recovering/Resolving]
  - Miosis [Unknown]
  - Unresponsive to stimuli [Recovering/Resolving]
